FAERS Safety Report 8890833 (Version 2)
Quarter: 2012Q4

REPORT INFORMATION
  Report Type: 
  Country: US (occurrence: US)
  Receive Date: 20121107
  Receipt Date: 20121227
  Transmission Date: 20130627
  Serious: No
  Sender: FDA-Public Use
  Company Number: US-ASTRAZENECA-2012SE81641

PATIENT
  Age: 26254 Day
  Sex: Female
  Weight: 66.2 kg

DRUGS (2)
  1. SYMBICORT PMDI [Suspect]
     Indication: ASTHMA
     Dosage: 80/4.5 MCG UNKNOWN
     Route: 055
     Dates: end: 201210
  2. SYMBICORT PMDI [Suspect]
     Indication: ASTHMA
     Route: 055

REACTIONS (2)
  - Pharyngeal oedema [Unknown]
  - Oropharyngeal pain [Recovered/Resolved]
